FAERS Safety Report 5001476-1 (Version None)
Quarter: 2006Q2

REPORT INFORMATION
  Report Type: 
  Country: None (occurrence: None)
  Receive Date: 20060512
  Receipt Date: 20051005
  Transmission Date: 20061013
  Serious: Yes (Other)
  Sender: FDA-Public Use
  Company Number: PR-MERCK-0510USA05069

PATIENT
  Age: 73 Year
  Sex: Female
  Weight: 58 kg

DRUGS (7)
  1. VIOXX [Suspect]
     Indication: ARTHRALGIA
     Route: 048
     Dates: start: 20021107, end: 20030808
  2. VIOXX [Suspect]
     Indication: ARTHROPATHY
     Route: 048
     Dates: start: 20021107, end: 20030808
  3. VIOXX [Suspect]
     Route: 048
     Dates: start: 20021107, end: 20030808
  4. VIOXX [Suspect]
     Route: 048
     Dates: start: 20021107, end: 20030808
  5. FLONASE [Concomitant]
     Route: 065
  6. FOSAMAX [Concomitant]
     Route: 048
  7. LORATADINE [Concomitant]
     Route: 065

REACTIONS (2)
  - CEREBROVASCULAR ACCIDENT [None]
  - OVERDOSE [None]
